FAERS Safety Report 10749367 (Version 2)
Quarter: 2015Q2

REPORT INFORMATION
  Report Type: Report from Study
  Country: FR (occurrence: FR)
  Receive Date: 20150129
  Receipt Date: 20150623
  Transmission Date: 20150821
  Serious: Yes (Hospitalization)
  Sender: FDA-Public Use
  Company Number: FR-BAYER-2015-009321

PATIENT
  Age: 70 Year
  Sex: Male
  Weight: 79 kg

DRUGS (15)
  1. CARDENSIEL [Concomitant]
     Active Substance: BISOPROLOL FUMARATE
     Indication: CARDIOVASCULAR EVENT PROPHYLAXIS
     Dosage: TOTAL DAILY DOSE 5 MG
     Dates: start: 2009
  2. VELMETIA [Concomitant]
     Active Substance: METFORMIN\SITAGLIPTIN
     Indication: DIABETES MELLITUS
     Dosage: TOTAL DAILY DOSE 50 MG
     Dates: start: 2008
  3. REGORAFENIB [Suspect]
     Active Substance: REGORAFENIB
     Indication: SARCOMA METASTATIC
     Dosage: 160 MG
     Dates: start: 20150116, end: 20150119
  4. TRIATEC [Concomitant]
     Active Substance: RAMIPRIL
     Indication: HYPERTENSION
     Dosage: TOTAL DAILY DOSE 10 MG
     Dates: start: 2005
  5. LYRICA [Concomitant]
     Active Substance: PREGABALIN
     Indication: SCIATICA
     Dosage: TOTAL DAILY DOSE 150 MG
     Dates: start: 2013
  6. CORVASAL [Concomitant]
     Active Substance: LINSIDOMINE
     Indication: ISCHAEMIC HEART DISEASE PROPHYLAXIS
     Dosage: TOTAL DAILY DOSE 2 MG
     Dates: start: 2009
  7. ALLOPURINOL. [Concomitant]
     Active Substance: ALLOPURINOL
     Indication: HYPERURICAEMIA
     Dosage: TOTAL DAILY DOSE 100 MG
     Dates: start: 2005
  8. INNOHEP [Concomitant]
     Active Substance: TINZAPARIN SODIUM
     Indication: THROMBOSIS PROPHYLAXIS
     Dosage: TOTAL DAILY DOSE 0.7 ML
     Dates: start: 2013
  9. KARDEGIC [Concomitant]
     Active Substance: ASPIRIN LYSINE
     Indication: ISCHAEMIC HEART DISEASE PROPHYLAXIS
     Dosage: TOTAL DAILY DOSE 75 MG
     Dates: start: 2009
  10. CRESTOR [Concomitant]
     Active Substance: ROSUVASTATIN CALCIUM
     Indication: HYPERCHOLESTEROLAEMIA
     Dosage: TOTAL DAILY DOSE 10 MG
     Dates: start: 2007
  11. FLECAINE [Concomitant]
     Active Substance: FLECAINIDE
     Indication: ARRHYTHMIA PROPHYLAXIS
     Dosage: TOTAL DAILY DOSE 150 MG
     Dates: start: 2013
  12. ACTISKENAN [Concomitant]
     Active Substance: MORPHINE SULFATE
     Indication: TUMOUR PAIN
     Dosage: UNK UNK, PRN
     Dates: start: 2014
  13. LASILIX [Concomitant]
     Active Substance: FUROSEMIDE
     Indication: HYPERTENSION
     Dosage: TOTAL DAILY DOSE 40 MG
     Dates: start: 2005
  14. DISCOTRINE [Concomitant]
     Active Substance: NITROGLYCERIN
     Indication: ISCHAEMIC HEART DISEASE PROPHYLAXIS
     Dosage: TOTAL DAILY DOSE 15 MG
     Dates: start: 2009
  15. SKENAN [Concomitant]
     Active Substance: MORPHINE SULFATE
     Indication: TUMOUR PAIN
     Dosage: TOTAL DAILY DOSE 30 MG 2X
     Dates: start: 2014

REACTIONS (1)
  - General physical health deterioration [Not Recovered/Not Resolved]

NARRATIVE: CASE EVENT DATE: 20150119
